FAERS Safety Report 7095977-2 (Version None)
Quarter: 2010Q4

REPORT INFORMATION
  Report Type: 
  Country: None (occurrence: None)
  Receive Date: 20101109
  Receipt Date: 20101109
  Transmission Date: 20110411
  Serious: Yes (Other)
  Sender: FDA-Public Use
  Company Number: None

PATIENT
  Age: 61 Year
  Sex: Female
  Weight: 83.0083 kg

DRUGS (1)
  1. HYDROCODONE BITARTRATE AND ACETAMINOPHEN [Suspect]
     Indication: PAIN
     Dosage: 1 TABLET 2 TIMES/DAY PO
     Route: 048
     Dates: start: 20101007, end: 20101008

REACTIONS (3)
  - JOINT DISLOCATION [None]
  - NIGHTMARE [None]
  - SKIN LACERATION [None]
